FAERS Safety Report 6040507-7 (Version None)
Quarter: 2009Q1

REPORT INFORMATION
  Report Type: 
  Country: None (occurrence: None)
  Receive Date: 20090116
  Receipt Date: 20080326
  Transmission Date: 20090719
  Serious: No
  Sender: FDA-Public Use
  Company Number: US-BRISTOL-MYERS SQUIBB COMPANY-14127195

PATIENT
  Age: 25 Year
  Sex: Male
  Weight: 84 kg

DRUGS (3)
  1. ABILIFY [Suspect]
     Indication: BIPOLAR I DISORDER
     Dosage: TOOK 1 DOSE IN MORNING.
     Dates: start: 20080325
  2. LITHIUM [Concomitant]
  3. DEPAKOTE [Concomitant]

REACTIONS (1)
  - MUSCLE RIGIDITY [None]
